FAERS Safety Report 16586957 (Version 3)
Quarter: 2019Q3

REPORT INFORMATION
  Report Type: Spontaneous
  Country: US (occurrence: US)
  Receive Date: 20190717
  Receipt Date: 20190827
  Transmission Date: 20191004
  Serious: Yes (Other)
  Sender: FDA-Public Use
  Company Number: US-SA-2019SA189510

PATIENT
  Age: 58 Year
  Sex: Female

DRUGS (2)
  1. TECFIDERA [Concomitant]
     Active Substance: DIMETHYL FUMARATE
  2. AUBAGIO [Suspect]
     Active Substance: TERIFLUNOMIDE
     Indication: MULTIPLE SCLEROSIS
     Dosage: 7 MG, QD
     Route: 048
     Dates: start: 20181102, end: 201907

REACTIONS (5)
  - Vomiting [Unknown]
  - Alopecia [Unknown]
  - Weight increased [Unknown]
  - Dehydration [Unknown]
  - Diarrhoea [Unknown]

NARRATIVE: CASE EVENT DATE: 20190817
